FAERS Safety Report 7397554-2 (Version None)
Quarter: 2011Q2

REPORT INFORMATION
  Report Type: 
  Country: None (occurrence: None)
  Receive Date: 20110406
  Receipt Date: 20110404
  Transmission Date: 20111010
  Serious: Yes (Death, Hospitalization)
  Sender: FDA-Public Use
  Company Number: GB-PFIZER INC-2011074626

PATIENT
  Age: 71 Year
  Sex: Male
  Weight: 104 kg

DRUGS (3)
  1. ZOPICLONE [Concomitant]
     Indication: INSOMNIA
     Dosage: 3.75 MG, UNK
     Route: 048
     Dates: start: 20080129
  2. FLUOXETINE [Concomitant]
     Indication: DEPRESSION
     Dosage: 20 MG, 1X/DAY
     Dates: start: 20080129
  3. CHAMPIX [Suspect]
     Indication: SMOKING CESSATION THERAPY
     Dosage: 500 UG, 2X/DAY
     Route: 048
     Dates: start: 20110302, end: 20110309

REACTIONS (2)
  - SUBARACHNOID HAEMORRHAGE [None]
  - MALAISE [None]
